FAERS Safety Report 7466043-9 (Version None)
Quarter: 2011Q2

REPORT INFORMATION
  Report Type: 
  Country: None (occurrence: None)
  Receive Date: 20110509
  Receipt Date: 20100609
  Transmission Date: 20111010
  Serious: No
  Sender: FDA-Public Use
  Company Number: US-ALEXION-A201000663

PATIENT
  Sex: Male

DRUGS (4)
  1. SOLIRIS [Suspect]
     Dosage: 900 MG, Q2WKS
     Route: 042
     Dates: start: 20090601
  2. ANTIHYPERTENSIVES [Concomitant]
  3. VALTREX [Concomitant]
  4. SOLIRIS [Suspect]
     Indication: PAROXYSMAL NOCTURNAL HAEMOGLOBINURIA
     Dosage: 600 MG, QWKX4
     Route: 042
     Dates: start: 20090501, end: 20090501

REACTIONS (3)
  - NASOPHARYNGITIS [None]
  - HERPES ZOSTER [None]
  - RESPIRATORY TRACT INFECTION [None]
